FAERS Safety Report 9421391 (Version 1)
Quarter: 2013Q3

REPORT INFORMATION
  Report Type: Spontaneous
  Country: BR (occurrence: BR)
  Receive Date: 20130725
  Receipt Date: 20130725
  Transmission Date: 20140515
  Serious: Yes (Other)
  Sender: FDA-Public Use
  Company Number: BR-BIOMARINAP-BR-2013-101122

PATIENT
  Age: 6 Year
  Sex: Male
  Weight: 16.5 kg

DRUGS (3)
  1. NAGLAZYME [Suspect]
     Indication: MUCOPOLYSACCHARIDOSIS VI
     Dosage: UNK UNK, QW
     Route: 041
     Dates: start: 20100722
  2. NAGLAZYME [Suspect]
     Dosage: 15 MG, QW
     Route: 041
     Dates: start: 20130719
  3. POLARAMINE [Concomitant]
     Indication: PREMEDICATION
     Route: 048

REACTIONS (3)
  - Unresponsive to stimuli [Recovered/Resolved]
  - Pallor [Recovered/Resolved]
  - Increased bronchial secretion [Unknown]
